FAERS Safety Report 26112681 (Version 1)
Quarter: 2025Q4

REPORT INFORMATION
  Report Type: Spontaneous
  Country: US (occurrence: US)
  Receive Date: 20251202
  Receipt Date: 20251202
  Transmission Date: 20260117
  Serious: Yes (Hospitalization)
  Sender: NOVARTIS
  Company Number: US-002147023-NVSC2025US182244

PATIENT
  Sex: Male

DRUGS (2)
  1. TAFINLAR [Suspect]
     Active Substance: DABRAFENIB MESYLATE
     Indication: Clostridium colitis
     Dosage: 50 MG, Q12H
     Route: 048
     Dates: start: 202501
  2. MEKINIST [Suspect]
     Active Substance: TRAMETINIB DIMETHYL SULFOXIDE
     Indication: Enterocolitis
     Dosage: 0.5 MG, QD
     Route: 048
     Dates: start: 202502

REACTIONS (1)
  - Pyrexia [Unknown]
